FAERS Safety Report 16580881 (Version 2)
Quarter: 2019Q3

REPORT INFORMATION
  Report Type: Spontaneous
  Country: US (occurrence: US)
  Receive Date: 20190716
  Receipt Date: 20190822
  Transmission Date: 20191004
  Serious: No
  Sender: FDA-Public Use
  Company Number: US-PFIZER INC-2019298708

PATIENT
  Age: 76 Year
  Sex: Female
  Weight: 88.44 kg

DRUGS (1)
  1. ADVIL LIQUI-GELS [Suspect]
     Active Substance: IBUPROFEN
     Indication: BACK PAIN
     Dosage: UNK(LOWEST DOSAGE 1-2X DAILY)
     Dates: start: 201907, end: 201907

REACTIONS (2)
  - Burning mouth syndrome [Unknown]
  - Product solubility abnormal [Unknown]

NARRATIVE: CASE EVENT DATE: 201907
